FAERS Safety Report 7620766-7 (Version None)
Quarter: 2011Q3

REPORT INFORMATION
  Report Type: 
  Country: None (occurrence: None)
  Receive Date: 20110719
  Receipt Date: 20110609
  Transmission Date: 20111222
  Serious: Yes (Other)
  Sender: FDA-Public Use
  Company Number: PHHY2011US50501

PATIENT
  Age: 47 Year
  Sex: Male
  Weight: 113 kg

DRUGS (15)
  1. DARBEPOETIN ALFA [Concomitant]
  2. PACLITAXEL [Concomitant]
     Dosage: 130 MG, UNK
     Route: 042
  3. ALPRAZOLAM [Concomitant]
     Dosage: 0.5 MG, BID
  4. OXYCODONE HCL [Concomitant]
     Indication: PAIN
     Dosage: 5 MG, (5-10 MG)
  5. VITAMIN K TAB [Concomitant]
  6. GRANISETRON [Concomitant]
     Dosage: 1 MG, UNK
     Route: 042
  7. WARFARIN SODIUM [Suspect]
     Dosage: 2.5 MG, UNK
  8. ERLOTINIB HYDROCHLORIDE [Interacting]
     Dosage: 150 MG, UNK
     Route: 048
  9. CITALOPRAM HYDROBROMIDE [Concomitant]
     Dosage: 10 MG, UNK
  10. RADIATION [Concomitant]
  11. CARBOPLATIN [Concomitant]
     Dosage: 285 MG, UNK
     Route: 042
  12. CIMETIDINE [Concomitant]
     Dosage: 300 MG, UNK
     Route: 042
  13. BEVACIZUMAB [Concomitant]
     Dosage: 1497 MG, EVERY THREE WEEKS
  14. DEXAMETHASONE [Concomitant]
     Dosage: 20 MG, UNK
  15. DIPHENHYDRAMINE HCL [Concomitant]
     Dosage: 25 MG, UNK

REACTIONS (7)
  - HAEMATOMA [None]
  - DIARRHOEA [None]
  - DRUG INTERACTION [None]
  - SWELLING [None]
  - INTERNATIONAL NORMALISED RATIO INCREASED [None]
  - RASH [None]
  - CONTUSION [None]
